FAERS Safety Report 13256193 (Version 7)
Quarter: 2022Q2

REPORT INFORMATION
  Report Type: Other
  Country: CA (occurrence: CA)
  Receive Date: 20170221
  Receipt Date: 20220616
  Transmission Date: 20220720
  Serious: Yes (Hospitalization, Disabling, Other)
  Sender: FDA-Public Use
  Company Number: CA-APOTEX-2017AP006791

PATIENT
  Age: 41 Year
  Sex: Male
  Weight: 90 kg

DRUGS (145)
  1. CYCLOSPORINE [Suspect]
     Active Substance: CYCLOSPORINE
     Indication: Psoriatic arthropathy
     Dosage: UNK
     Route: 048
  2. CYCLOSPORINE [Suspect]
     Active Substance: CYCLOSPORINE
     Indication: Product used for unknown indication
     Dosage: UNK
     Route: 065
  3. LEFLUNOMIDE [Suspect]
     Active Substance: LEFLUNOMIDE
     Indication: Rheumatoid arthritis
     Dosage: UNK
     Route: 065
  4. LEFLUNOMIDE [Suspect]
     Active Substance: LEFLUNOMIDE
     Indication: Product used for unknown indication
     Dosage: UNK
     Route: 048
  5. IBUPROFEN [Suspect]
     Active Substance: IBUPROFEN
     Indication: Psoriatic arthropathy
     Dosage: 600 MILLIGRAM
     Route: 048
  6. IBUPROFEN [Suspect]
     Active Substance: IBUPROFEN
     Indication: Product used for unknown indication
     Dosage: UNK, QD
     Route: 048
  7. IBUPROFEN [Suspect]
     Active Substance: IBUPROFEN
     Dosage: 600 MILLIGRAM, QD
     Route: 048
  8. IBUPROFEN [Suspect]
     Active Substance: IBUPROFEN
     Dosage: 600 MILLIGRAM, 6 EVERY 1 DAY
     Route: 048
  9. IBUPROFEN [Suspect]
     Active Substance: IBUPROFEN
     Dosage: 6 DOSAGE FORM, QD
     Route: 065
  10. FOLIC ACID [Suspect]
     Active Substance: FOLIC ACID
     Indication: Psoriatic arthropathy
     Dosage: UNK
     Route: 065
  11. METHOTREXATE [Suspect]
     Active Substance: METHOTREXATE
     Indication: Rheumatoid arthritis
     Dosage: 2.5 MILLIGRAM, Q.WK.
     Route: 065
  12. METHOTREXATE [Suspect]
     Active Substance: METHOTREXATE
     Dosage: 10 MILLIGRAM, Q.WK.
     Route: 065
  13. METHOTREXATE [Suspect]
     Active Substance: METHOTREXATE
     Dosage: 4 DOSAGE FORM
     Route: 065
  14. METHOTREXATE [Suspect]
     Active Substance: METHOTREXATE
     Dosage: 10 MILLIGRAM
     Route: 065
  15. METHOTREXATE [Suspect]
     Active Substance: METHOTREXATE
     Dosage: 15 MILLIGRAM, Q.WK.
     Route: 065
  16. METHOTREXATE [Suspect]
     Active Substance: METHOTREXATE
     Dosage: 7.5 MILLIGRAM, Q.WK.
     Route: 048
  17. METHOTREXATE [Suspect]
     Active Substance: METHOTREXATE
     Dosage: 10 MILLIGRAM
     Route: 048
  18. METHOTREXATE [Suspect]
     Active Substance: METHOTREXATE
     Dosage: UNK
     Route: 065
  19. METHOTREXATE [Suspect]
     Active Substance: METHOTREXATE
     Dosage: UNK, Q.WK.
     Route: 048
  20. METHOTREXATE [Suspect]
     Active Substance: METHOTREXATE
     Dosage: 12 MILLIGRAM
     Route: 065
  21. METHOTREXATE [Suspect]
     Active Substance: METHOTREXATE
     Dosage: 25.0 MILLIGRAM, QD
     Route: 065
  22. METHOTREXATE [Suspect]
     Active Substance: METHOTREXATE
     Dosage: 12.5 MILLIGRAM
     Route: 065
  23. METHOTREXATE [Suspect]
     Active Substance: METHOTREXATE
     Dosage: 4 DOSAGE FORM, Q.WK.
     Route: 048
  24. METHOTREXATE [Suspect]
     Active Substance: METHOTREXATE
     Dosage: 25.0 MILLIGRAM, Q.M.T.
     Route: 065
  25. METHOTREXATE [Suspect]
     Active Substance: METHOTREXATE
     Dosage: 10 MILLIGRAM, Q.WK.
     Route: 048
  26. METHOTREXATE [Suspect]
     Active Substance: METHOTREXATE
     Dosage: 70 MILLIGRAM, Q.WK.
     Route: 065
  27. METHOTREXATE [Suspect]
     Active Substance: METHOTREXATE
     Dosage: 2.5 MILLIGRAM, Q.WK.
     Route: 065
  28. METHOTREXATE [Suspect]
     Active Substance: METHOTREXATE
     Dosage: 17.5 MILLIGRAM
     Route: 065
  29. NITRAZEPAM [Suspect]
     Active Substance: NITRAZEPAM
     Indication: Product used for unknown indication
     Dosage: 5 MILLIGRAM
     Route: 065
  30. OXYCODONE [Suspect]
     Active Substance: OXYCODONE
     Indication: Product used for unknown indication
     Dosage: 10 MILLIGRAM
     Route: 065
  31. OXYCODONE [Suspect]
     Active Substance: OXYCODONE
     Dosage: 40 MILLIGRAM
     Route: 065
  32. SULFAMETHOXAZOLE [Suspect]
     Active Substance: SULFAMETHOXAZOLE
     Indication: Product used for unknown indication
     Dosage: 600 MILLIGRAM
     Route: 048
  33. ALENDRONATE [Suspect]
     Active Substance: ALENDRONATE SODIUM
     Indication: Product used for unknown indication
     Dosage: 70.0 MILLIGRAM
     Route: 065
  34. AZATHIOPRINE [Suspect]
     Active Substance: AZATHIOPRINE
     Indication: Product used for unknown indication
     Dosage: UNK
     Route: 065
  35. DIPHENHYDRAMINE [Suspect]
     Active Substance: DIPHENHYDRAMINE
     Indication: Product used for unknown indication
     Dosage: UNK
     Route: 065
  36. HYDROXYCHLOROQUINE [Suspect]
     Active Substance: HYDROXYCHLOROQUINE
     Indication: Rheumatoid arthritis
     Dosage: UNK
     Route: 065
  37. HYDROXYCHLOROQUINE [Suspect]
     Active Substance: HYDROXYCHLOROQUINE
     Dosage: 200 MILLIGRAM, BID
     Route: 065
  38. LEFLUNOMIDE [Suspect]
     Active Substance: LEFLUNOMIDE
     Indication: Psoriatic arthropathy
     Dosage: UNK
     Route: 048
  39. APREMILAST [Suspect]
     Active Substance: APREMILAST
     Indication: Psoriatic arthropathy
     Dosage: 30 MILLIGRAM, BID
     Route: 048
  40. APREMILAST [Suspect]
     Active Substance: APREMILAST
     Indication: Rheumatoid arthritis
     Dosage: UNK
     Route: 065
  41. APREMILAST [Suspect]
     Active Substance: APREMILAST
     Indication: Psoriasis
     Dosage: 60 MILLIGRAM, BID
     Route: 048
  42. CERTOLIZUMAB PEGOL [Suspect]
     Active Substance: CERTOLIZUMAB PEGOL
     Indication: Psoriatic arthropathy
     Dosage: UNK
     Route: 058
  43. CERTOLIZUMAB PEGOL [Suspect]
     Active Substance: CERTOLIZUMAB PEGOL
     Dosage: UNK
     Route: 065
  44. CIMZIA [Suspect]
     Active Substance: CERTOLIZUMAB PEGOL
     Indication: Psoriatic arthropathy
     Dosage: UNK
     Route: 058
  45. ENBREL [Suspect]
     Active Substance: ETANERCEPT
     Indication: Rheumatoid arthritis
     Dosage: UNK
     Route: 058
  46. ENBREL [Suspect]
     Active Substance: ETANERCEPT
     Indication: Psoriatic arthropathy
     Dosage: 25.0 MILLIGRAM
     Route: 065
  47. ENBREL [Suspect]
     Active Substance: ETANERCEPT
     Indication: Psoriasis
     Dosage: 20.0 MILLIGRAM, QD
     Route: 065
  48. ENBREL [Suspect]
     Active Substance: ETANERCEPT
     Dosage: 50.0 MILLIGRAM, Q.WK.
     Route: 058
  49. ENBREL [Suspect]
     Active Substance: ETANERCEPT
     Dosage: 25 MILLIGRAM, B.I.WK.
     Route: 058
  50. ENBREL [Suspect]
     Active Substance: ETANERCEPT
     Dosage: UNK
     Route: 065
  51. ENBREL [Suspect]
     Active Substance: ETANERCEPT
     Dosage: 25 MILLIGRAM, B.I.WK.
     Route: 065
  52. HUMIRA [Suspect]
     Active Substance: ADALIMUMAB
     Indication: Psoriatic arthropathy
     Dosage: UNK
     Route: 058
  53. HUMIRA [Suspect]
     Active Substance: ADALIMUMAB
     Indication: Rheumatoid arthritis
     Dosage: 40.0 MILLIGRAM
     Route: 058
  54. INFLIXIMAB [Suspect]
     Active Substance: INFLIXIMAB
     Indication: Psoriatic arthropathy
     Dosage: UNK
     Route: 048
  55. MOTRIN [Suspect]
     Active Substance: IBUPROFEN
     Indication: Product used for unknown indication
     Dosage: 600 MILLIGRAM, QD
     Route: 048
  56. ORENCIA [Suspect]
     Active Substance: ABATACEPT
     Indication: Psoriatic arthropathy
     Dosage: UNK
     Route: 058
  57. ORENCIA [Suspect]
     Active Substance: ABATACEPT
     Indication: Rheumatoid arthritis
     Dosage: UNK
     Route: 065
  58. OTEZLA [Suspect]
     Active Substance: APREMILAST
     Indication: Psoriatic arthropathy
     Dosage: 30 MILLIGRAM, BID
     Route: 048
  59. OTEZLA [Suspect]
     Active Substance: APREMILAST
     Indication: Rheumatoid arthritis
     Dosage: UNK
     Route: 065
  60. OTEZLA [Suspect]
     Active Substance: APREMILAST
     Indication: Psoriasis
     Dosage: 60.0 MILLIGRAM, BID
     Route: 065
  61. SIMPONI [Suspect]
     Active Substance: GOLIMUMAB
     Indication: Psoriatic arthropathy
     Dosage: UNK
     Route: 058
  62. SIMPONI [Suspect]
     Active Substance: GOLIMUMAB
     Dosage: UNK
     Route: 065
  63. STELARA [Suspect]
     Active Substance: USTEKINUMAB
     Indication: Psoriatic arthropathy
     Dosage: 10 MILLIGRAM
     Route: 058
  64. STELARA [Suspect]
     Active Substance: USTEKINUMAB
     Dosage: UNK
     Route: 065
  65. STELARA [Suspect]
     Active Substance: USTEKINUMAB
     Dosage: UNK
     Route: 058
  66. ABATACEPT [Suspect]
     Active Substance: ABATACEPT
     Indication: Psoriatic arthropathy
     Dosage: UNK
     Route: 065
  67. ADALIMUMAB [Suspect]
     Active Substance: ADALIMUMAB
     Indication: Psoriatic arthropathy
     Dosage: UNK
     Route: 058
  68. ALENDRONIC ACID [Suspect]
     Active Substance: ALENDRONIC ACID
     Indication: Product used for unknown indication
     Dosage: UNK
     Route: 065
  69. ACTEMRA [Suspect]
     Active Substance: TOCILIZUMAB
     Indication: Product used for unknown indication
     Dosage: 8.0 MILLIGRAM
     Route: 065
  70. SULFASALAZINE [Suspect]
     Active Substance: SULFASALAZINE
     Indication: Product used for unknown indication
     Dosage: 10 MILLIGRAM
     Route: 005
  71. SULFASALAZINE [Suspect]
     Active Substance: SULFASALAZINE
     Indication: Rheumatoid arthritis
     Dosage: 1 GRAM, BID
     Route: 048
  72. SULFASALAZINE [Suspect]
     Active Substance: SULFASALAZINE
     Indication: Psoriatic arthropathy
     Dosage: UNK
     Route: 065
  73. SULFASALAZINE [Suspect]
     Active Substance: SULFASALAZINE
     Dosage: 500.0 MILLIGRAM
     Route: 065
  74. GOLIMUMAB [Suspect]
     Active Substance: GOLIMUMAB
     Indication: Psoriatic arthropathy
     Dosage: UNK
     Route: 058
  75. ETANERCEPT [Suspect]
     Active Substance: ETANERCEPT
     Indication: Rheumatoid arthritis
     Dosage: UNK
     Route: 065
  76. ETANERCEPT [Suspect]
     Active Substance: ETANERCEPT
     Indication: Psoriatic arthropathy
  77. ETANERCEPT [Suspect]
     Active Substance: ETANERCEPT
     Indication: Psoriasis
  78. USTEKINUMAB [Suspect]
     Active Substance: USTEKINUMAB
     Indication: Psoriatic arthropathy
     Dosage: UNK
     Route: 065
  79. USTEKINUMAB [Suspect]
     Active Substance: USTEKINUMAB
     Dosage: UNK
     Route: 058
  80. BENADRYL [Suspect]
     Active Substance: DIPHENHYDRAMINE HYDROCHLORIDE
     Indication: Product used for unknown indication
     Dosage: UNK
     Route: 065
  81. COLCHICINE [Suspect]
     Active Substance: COLCHICINE
     Indication: Psoriatic arthropathy
     Dosage: 0.6 MILLIGRAM
     Route: 048
  82. DEXILANT [Suspect]
     Active Substance: DEXLANSOPRAZOLE
     Indication: Product used for unknown indication
     Dosage: UNK
     Route: 065
  83. FEBUXOSTAT [Suspect]
     Active Substance: FEBUXOSTAT
     Indication: Product used for unknown indication
     Dosage: 80 MILLIGRAM, BID
     Route: 065
  84. NITRAZEPAM [Suspect]
     Active Substance: NITRAZEPAM
     Indication: Product used for unknown indication
     Dosage: 5 MILLIGRAM
     Route: 048
  85. REMICADE [Suspect]
     Active Substance: INFLIXIMAB
     Indication: Psoriatic arthropathy
     Dosage: UNK
     Route: 042
  86. REMICADE [Suspect]
     Active Substance: INFLIXIMAB
     Dosage: UNK
     Route: 041
  87. ULORIC [Suspect]
     Active Substance: FEBUXOSTAT
     Indication: Psoriatic arthropathy
     Dosage: 80 MILLIGRAM, BID
     Route: 048
  88. ULORIC [Suspect]
     Active Substance: FEBUXOSTAT
     Dosage: 10 UNK
     Route: 048
  89. ARAVA [Suspect]
     Active Substance: LEFLUNOMIDE
     Indication: Rheumatoid arthritis
     Dosage: 20.0 MILLIGRAM, QD
     Route: 048
  90. FOSAMAX [Suspect]
     Active Substance: ALENDRONATE SODIUM
     Indication: Rheumatoid arthritis
     Dosage: 70.0 MILLIGRAM, Q.WK.
     Route: 065
  91. GOLD [Suspect]
     Active Substance: GOLD
     Indication: Product used for unknown indication
     Dosage: UNK
     Route: 065
  92. GOLD SODIUM THIOMALATE [Suspect]
     Active Substance: GOLD SODIUM THIOMALATE
     Indication: Product used for unknown indication
     Dosage: UNK
     Route: 065
  93. RITUXIMAB [Suspect]
     Active Substance: RITUXIMAB
     Indication: Rheumatoid arthritis
     Dosage: 1000.0 MILLIGRAM, BID
     Route: 042
  94. RITUXIMAB [Suspect]
     Active Substance: RITUXIMAB
     Indication: Psoriatic arthropathy
     Dosage: 1000.0 MILLIGRAM, BID
     Route: 065
  95. MYOCHRYSINE [Suspect]
     Active Substance: GOLD SODIUM THIOMALATE
     Indication: Rheumatoid arthritis
     Dosage: 50.0 MILLIGRAM, Q.M.T.
     Route: 051
  96. MYOCHRYSINE [Suspect]
     Active Substance: GOLD SODIUM THIOMALATE
     Dosage: 50.0 MILLIGRAM, Q.M.T.
     Route: 030
  97. INFLIXIMAB [Suspect]
     Active Substance: INFLIXIMAB
     Indication: Psoriatic arthropathy
     Dosage: 400.0 MILLIGRAM
     Route: 042
  98. INFLIXIMAB [Suspect]
     Active Substance: INFLIXIMAB
     Dosage: 300.0 MILLIGRAM
     Route: 042
  99. METHOTREXATE [Suspect]
     Active Substance: METHOTREXATE
     Indication: Rheumatoid arthritis
     Dosage: 10.0 MILLIGRAM
     Route: 058
  100. METHOTREXATE [Suspect]
     Active Substance: METHOTREXATE
     Dosage: 17.5 MILLIGRAM
     Route: 058
  101. METHOTREXATE [Suspect]
     Active Substance: METHOTREXATE
     Dosage: 15.0 MILLIGRAM
     Route: 058
  102. METHOTREXATE [Suspect]
     Active Substance: METHOTREXATE
     Dosage: 12.5 MILLIGRAM, Q.WK.
     Route: 058
  103. ERELZI [Suspect]
     Active Substance: ETANERCEPT-SZZS
     Indication: Rheumatoid arthritis
     Dosage: UNK
     Route: 058
  104. ERELZI [Suspect]
     Active Substance: ETANERCEPT-SZZS
     Indication: Psoriatic arthropathy
     Dosage: UNK
     Route: 065
  105. ERELZI [Suspect]
     Active Substance: ETANERCEPT-SZZS
     Indication: Psoriasis
  106. CELEBREX [Suspect]
     Active Substance: CELECOXIB
     Indication: Adenomatous polyposis coli
     Dosage: 200.0 MILLIGRAM, BID
     Route: 048
  107. CODEINE [Suspect]
     Active Substance: CODEINE
     Indication: Product used for unknown indication
     Dosage: UNK
     Route: 065
  108. COSENTYX [Suspect]
     Active Substance: SECUKINUMAB
     Indication: Psoriatic arthropathy
     Dosage: UNK
     Route: 065
  109. COSENTYX [Suspect]
     Active Substance: SECUKINUMAB
     Dosage: 300.0 MILLIGRAM, Q.M.T.
     Route: 058
  110. TOCILIZUMAB [Suspect]
     Active Substance: TOCILIZUMAB
     Indication: Rheumatoid arthritis
     Dosage: 360.0 MILLIGRAM
     Route: 065
  111. TOCILIZUMAB [Suspect]
     Active Substance: TOCILIZUMAB
     Dosage: 680.0 MILLIGRAM
     Route: 065
  112. COLCHICINE [Concomitant]
     Active Substance: COLCHICINE
     Indication: Product used for unknown indication
     Dosage: UNK
     Route: 065
  113. COLCHICINE [Concomitant]
     Active Substance: COLCHICINE
     Dosage: 0.6 MILLIGRAM
     Route: 048
  114. COLCHICINE [Concomitant]
     Active Substance: COLCHICINE
     Dosage: 6 MILLIGRAM
     Route: 048
  115. FOLIC ACID [Concomitant]
     Active Substance: FOLIC ACID
     Indication: Product used for unknown indication
     Dosage: UNK
     Route: 065
  116. METHOTREXATE SODIUM [Concomitant]
     Active Substance: METHOTREXATE SODIUM
     Indication: Rheumatoid arthritis
     Dosage: 4 DOSAGE FORM, Q.WK.
     Route: 065
  117. NITRAZEPAM [Concomitant]
     Active Substance: NITRAZEPAM
     Indication: Product used for unknown indication
     Dosage: 5 MILLIGRAM
     Route: 065
  118. NITRAZEPAM [Concomitant]
     Active Substance: NITRAZEPAM
     Dosage: 5 MILLIGRAM
     Route: 048
  119. OXYCODONE [Concomitant]
     Active Substance: OXYCODONE
     Indication: Product used for unknown indication
     Dosage: 40.0 MILLIGRAM
     Route: 065
  120. OXYCODONE [Concomitant]
     Active Substance: OXYCODONE
     Dosage: 10.0 MILLIGRAM
     Route: 065
  121. ULORIC [Concomitant]
     Active Substance: FEBUXOSTAT
     Indication: Product used for unknown indication
     Dosage: UNK
     Route: 065
  122. ULORIC [Concomitant]
     Active Substance: FEBUXOSTAT
     Dosage: 160.0 MILLIGRAM, BID
     Route: 048
  123. ULORIC [Concomitant]
     Active Substance: FEBUXOSTAT
     Dosage: 80.0 MILLIGRAM, BID
     Route: 048
  124. ULORIC [Concomitant]
     Active Substance: FEBUXOSTAT
     Dosage: 80.0 MILLIGRAM, BID
     Route: 065
  125. ULORIC [Concomitant]
     Active Substance: FEBUXOSTAT
     Dosage: 8.0 MILLIGRAM, BID
     Route: 048
  126. FEBUXOSTAT [Concomitant]
     Active Substance: FEBUXOSTAT
     Indication: Product used for unknown indication
     Dosage: 80 MG, BID
     Route: 065
  127. FEBUXOSTAT [Concomitant]
     Active Substance: FEBUXOSTAT
     Dosage: UNK
     Route: 065
  128. OXYCODONE HYDROCHLORIDE [Concomitant]
     Active Substance: OXYCODONE HYDROCHLORIDE
     Indication: Product used for unknown indication
     Dosage: UNK
     Route: 065
  129. OXYCODONE HYDROCHLORIDE [Concomitant]
     Active Substance: OXYCODONE HYDROCHLORIDE
     Dosage: 10.0 MILLIGRAM
     Route: 065
  130. OXYCODONE HYDROCHLORIDE [Concomitant]
     Active Substance: OXYCODONE HYDROCHLORIDE
     Dosage: 40.0 MILLIGRAM
     Route: 065
  131. GRAVOL [Concomitant]
     Active Substance: DIMENHYDRINATE
     Indication: Product used for unknown indication
     Dosage: UNK
     Route: 065
  132. NITRAZEPAM [Concomitant]
     Active Substance: NITRAZEPAM
     Indication: Product used for unknown indication
     Dosage: UNK
     Route: 048
  133. NITRAZEPAM [Concomitant]
     Active Substance: NITRAZEPAM
     Dosage: 5.0 MILLIGRAM
     Route: 065
  134. NITRAZEPAM [Concomitant]
     Active Substance: NITRAZEPAM
     Dosage: 50 MILLIGRAM
     Route: 048
  135. CANNABIS SATIVA FLOWERING TOP [Concomitant]
     Active Substance: CANNABIS SATIVA FLOWERING TOP
     Indication: Product used for unknown indication
     Dosage: UNK
     Route: 065
  136. CHOLECALCIFEROL [Concomitant]
     Active Substance: CHOLECALCIFEROL
     Indication: Product used for unknown indication
     Dosage: UNK
     Route: 065
  137. DEXILANT [Concomitant]
     Active Substance: DEXLANSOPRAZOLE
     Indication: Product used for unknown indication
     Dosage: UNK
     Route: 048
  138. DEXILANT [Concomitant]
     Active Substance: DEXLANSOPRAZOLE
     Indication: Product used for unknown indication
     Dosage: UNK
     Route: 065
  139. NAPROXEN [Concomitant]
     Active Substance: NAPROXEN
     Indication: Product used for unknown indication
     Dosage: 500.0 MILLIGRAM
     Route: 065
  140. PREDNISONE [Concomitant]
     Active Substance: PREDNISONE
     Indication: Product used for unknown indication
     Dosage: UNK
     Route: 067
  141. PREDNISONE [Concomitant]
     Active Substance: PREDNISONE
     Dosage: 20.0 MILLIGRAM
     Route: 065
  142. PREDNISONE [Concomitant]
     Active Substance: PREDNISONE
     Dosage: 10.0 MILLIGRAM, QD
     Route: 065
  143. RISEDRONATE SODIUM [Concomitant]
     Active Substance: RISEDRONATE SODIUM
     Indication: Product used for unknown indication
     Dosage: 35.0 MILLIGRAM, Q.WK.
     Route: 048
  144. VITAMIN D3 [Concomitant]
     Active Substance: CHOLECALCIFEROL
     Indication: Product used for unknown indication
     Dosage: 2000.0 INTERNATIONAL UNIT
     Route: 048
  145. XELJANZ [Concomitant]
     Active Substance: TOFACITINIB CITRATE
     Indication: Product used for unknown indication
     Dosage: UNK
     Route: 065

REACTIONS (79)
  - Loss of personal independence in daily activities [Not Recovered/Not Resolved]
  - C-reactive protein abnormal [Not Recovered/Not Resolved]
  - Tendonitis [Not Recovered/Not Resolved]
  - Tenosynovitis [Not Recovered/Not Resolved]
  - Drug intolerance [Not Recovered/Not Resolved]
  - Enthesopathy [Not Recovered/Not Resolved]
  - Erythema [Not Recovered/Not Resolved]
  - Psoriatic arthropathy [Not Recovered/Not Resolved]
  - Synovitis [Not Recovered/Not Resolved]
  - Contraindicated product administered [Not Recovered/Not Resolved]
  - Tongue disorder [Not Recovered/Not Resolved]
  - General physical health deterioration [Not Recovered/Not Resolved]
  - C-reactive protein increased [Not Recovered/Not Resolved]
  - Off label use [Not Recovered/Not Resolved]
  - Mobility decreased [Not Recovered/Not Resolved]
  - Mucosal inflammation [Unknown]
  - Alanine aminotransferase abnormal [Not Recovered/Not Resolved]
  - Alopecia [Not Recovered/Not Resolved]
  - Arthritis [Not Recovered/Not Resolved]
  - Arthropathy [Not Recovered/Not Resolved]
  - Basal cell carcinoma [Not Recovered/Not Resolved]
  - Blood parathyroid hormone decreased [Not Recovered/Not Resolved]
  - Drug tolerance [Not Recovered/Not Resolved]
  - Drug tolerance decreased [Not Recovered/Not Resolved]
  - Fear of injection [Not Recovered/Not Resolved]
  - Gastric disorder [Not Recovered/Not Resolved]
  - Granuloma [Not Recovered/Not Resolved]
  - Drug eruption [Not Recovered/Not Resolved]
  - Granuloma skin [Not Recovered/Not Resolved]
  - Inflammation [Not Recovered/Not Resolved]
  - Infusion related reaction [Not Recovered/Not Resolved]
  - Insomnia [Not Recovered/Not Resolved]
  - Joint injury [Not Recovered/Not Resolved]
  - Joint swelling [Not Recovered/Not Resolved]
  - Rash [Not Recovered/Not Resolved]
  - Malaise [Not Recovered/Not Resolved]
  - Musculoskeletal disorder [Not Recovered/Not Resolved]
  - Musculoskeletal stiffness [Not Recovered/Not Resolved]
  - Panniculitis [Not Recovered/Not Resolved]
  - Peripheral swelling [Not Recovered/Not Resolved]
  - Rash pruritic [Not Recovered/Not Resolved]
  - Red blood cell sedimentation rate [Not Recovered/Not Resolved]
  - Red blood cell sedimentation rate increased [Not Recovered/Not Resolved]
  - Rheumatoid arthritis [Not Recovered/Not Resolved]
  - Rheumatoid lung [Not Recovered/Not Resolved]
  - Rheumatoid nodule [Not Recovered/Not Resolved]
  - Skin necrosis [Not Recovered/Not Resolved]
  - Ulcer [Not Recovered/Not Resolved]
  - Skin ulcer [Not Recovered/Not Resolved]
  - Condition aggravated [Not Recovered/Not Resolved]
  - Overdose [Not Recovered/Not Resolved]
  - Pulmonary fibrosis [Not Recovered/Not Resolved]
  - Hypercalcaemia [Not Recovered/Not Resolved]
  - Pain [Not Recovered/Not Resolved]
  - Product use issue [Not Recovered/Not Resolved]
  - Urticaria [Not Recovered/Not Resolved]
  - Hypersensitivity [Unknown]
  - Arthralgia [Not Recovered/Not Resolved]
  - Drug hypersensitivity [Not Recovered/Not Resolved]
  - Abdominal discomfort [Not Recovered/Not Resolved]
  - Blood creatinine increased [Not Recovered/Not Resolved]
  - Osteomyelitis [Not Recovered/Not Resolved]
  - Decreased appetite [Not Recovered/Not Resolved]
  - Fatigue [Not Recovered/Not Resolved]
  - Diarrhoea [Not Recovered/Not Resolved]
  - Hepatic enzyme increased [Unknown]
  - Blood pressure systolic increased [Not Recovered/Not Resolved]
  - Headache [Not Recovered/Not Resolved]
  - Hypertension [Not Recovered/Not Resolved]
  - Aspartate aminotransferase increased [Not Recovered/Not Resolved]
  - Alanine aminotransferase increased [Not Recovered/Not Resolved]
  - Infection [Unknown]
  - Nausea [Not Recovered/Not Resolved]
  - Therapy non-responder [Not Recovered/Not Resolved]
  - Treatment failure [Not Recovered/Not Resolved]
  - Drug ineffective [Not Recovered/Not Resolved]
  - Therapeutic product effect decreased [Not Recovered/Not Resolved]
  - Therapeutic product effect incomplete [Not Recovered/Not Resolved]
  - Therapeutic response decreased [Not Recovered/Not Resolved]
